FAERS Safety Report 21378639 (Version 2)
Quarter: 2022Q4

REPORT INFORMATION
  Report Type: Report from Study
  Country: IT (occurrence: IT)
  Receive Date: 20220927
  Receipt Date: 20221014
  Transmission Date: 20230112
  Serious: No
  Sender: FDA-Public Use
  Company Number: IT-NOVARTISPH-NVSC2021IT214557

PATIENT
  Sex: Female

DRUGS (2)
  1. COSENTYX [Suspect]
     Active Substance: SECUKINUMAB
     Indication: Product used for unknown indication
     Dosage: 300 MG, QMO
     Route: 065
     Dates: start: 20210203
  2. COSENTYX [Suspect]
     Active Substance: SECUKINUMAB
     Dosage: 300 MG, QMO (EVERY 28 DAYS)
     Route: 065
     Dates: start: 20220214

REACTIONS (15)
  - Decreased immune responsiveness [Unknown]
  - Rebound psoriasis [Unknown]
  - Nausea [Unknown]
  - Stress [Unknown]
  - Headache [Unknown]
  - Pyrexia [Unknown]
  - Pain [Unknown]
  - Illness [Unknown]
  - COVID-19 [Recovered/Resolved with Sequelae]
  - Nasal congestion [Unknown]
  - Chest pain [Unknown]
  - Bone pain [Unknown]
  - Nasal injury [Unknown]
  - Diarrhoea [Unknown]
  - Inappropriate schedule of product administration [Unknown]
